FAERS Safety Report 4796399-7 (Version None)
Quarter: 2005Q3

REPORT INFORMATION
  Report Type: 
  Country: None (occurrence: None)
  Receive Date: 20050916
  Receipt Date: 20040923
  Transmission Date: 20060218
  Serious: Yes (Hospitalization)
  Sender: FDA-Public Use
  Company Number: US-JNJFOC-20040908143

PATIENT
  Age: 18 Month
  Sex: Male
  Weight: 10.8863 kg

DRUGS (1)
  1. TOPAMAX [Suspect]
     Indication: CONVULSION
     Dosage: 25 MG, 2 IN 1 DAY, ORAL
     Route: 048

REACTIONS (3)
  - CARBON DIOXIDE DECREASED [None]
  - INFANTILE SPASMS [None]
  - WEIGHT DECREASED [None]
